FAERS Safety Report 25124714 (Version 2)
Quarter: 2025Q1

REPORT INFORMATION
  Report Type: Spontaneous
  Country: US (occurrence: US)
  Receive Date: 20250326
  Receipt Date: 20250328
  Transmission Date: 20250409
  Serious: Yes (Life-Threatening, Hospitalization)
  Sender: AUTOLUS THERAPEUTICS
  Company Number: US-Autolus Ltd-2173710

PATIENT
  Age: 20 Year
  Sex: Female

DRUGS (1)
  1. AUCATZYL [Suspect]
     Active Substance: OBECABTAGENE AUTOLEUCEL
     Indication: Acute lymphocytic leukaemia recurrent
     Dates: start: 20250124, end: 20250207

REACTIONS (1)
  - Immune effector cell-associated HLH-like syndrome [Unknown]
